FAERS Safety Report 4682317-9 (Version None)
Quarter: 2005Q2

REPORT INFORMATION
  Report Type: 
  Country: None (occurrence: None)
  Receive Date: 20050606
  Receipt Date: 20050524
  Transmission Date: 20051028
  Serious: Yes (Other)
  Sender: FDA-Public Use
  Company Number: GB-JNJFOC-20050500706

PATIENT
  Sex: Male

DRUGS (2)
  1. RISPERDAL [Suspect]
     Indication: PSYCHOTIC DISORDER
     Route: 049
     Dates: start: 20040204
  2. EPILIM [Concomitant]
     Indication: EPILEPSY
     Route: 065
     Dates: start: 19940101

REACTIONS (3)
  - NAIL DISCOLOURATION [None]
  - NAIL DISORDER [None]
  - NAIL INFECTION [None]
